FAERS Safety Report 18029764 (Version 1)
Quarter: 2020Q3

REPORT INFORMATION
  Report Type: Spontaneous
  Country: US (occurrence: US)
  Receive Date: 20200715
  Receipt Date: 20200715
  Transmission Date: 20201103
  Serious: Yes (Other)
  Sender: FDA-Public Use
  Company Number: US-PFIZER INC-2016558354

PATIENT
  Age: 79 Year
  Sex: Female

DRUGS (10)
  1. EPIPEN [Concomitant]
     Active Substance: EPINEPHRINE
     Indication: ANAPHYLACTIC REACTION
  2. EPIPEN [Concomitant]
     Active Substance: EPINEPHRINE
     Indication: DIZZINESS
  3. EPIPEN [Concomitant]
     Active Substance: EPINEPHRINE
     Indication: DYSPNOEA
     Dosage: 0.3 ML, AS NEEDED ((0.3 MG/0.3 ML, INJECT 0.3 MG TOTAL INTO THE MUSCLE ONCE AS NEEDED)
     Route: 030
  4. PEPCID [Concomitant]
     Active Substance: FAMOTIDINE
     Dosage: 20 MG, 2X/DAY
     Route: 048
  5. VITAMIN B12 [Concomitant]
     Active Substance: CYANOCOBALAMIN
     Dosage: 50 UG, DAILY
     Route: 048
  6. EPIPEN [Concomitant]
     Active Substance: EPINEPHRINE
     Indication: LOSS OF CONSCIOUSNESS
  7. EPIPEN [Concomitant]
     Active Substance: EPINEPHRINE
     Indication: VOMITING
  8. ELAVIL [Concomitant]
     Active Substance: AMITRIPTYLINE HYDROCHLORIDE
     Dosage: 10 MG
  9. LYRICA [Suspect]
     Active Substance: PREGABALIN
     Dosage: 200 MG, 2X/DAY
     Route: 048
  10. EPIPEN [Concomitant]
     Active Substance: EPINEPHRINE
     Indication: WHEEZING

REACTIONS (2)
  - Neuropathy peripheral [Unknown]
  - Feeling abnormal [Unknown]
